FAERS Safety Report 12246243 (Version 2)
Quarter: 2016Q2

REPORT INFORMATION
  Report Type: Report from Study
  Country: NL (occurrence: NL)
  Receive Date: 20160407
  Receipt Date: 20160506
  Transmission Date: 20160815
  Serious: Yes (Death, Other)
  Sender: FDA-Public Use
  Company Number: PHHY2016NL045632

PATIENT
  Sex: Female

DRUGS (1)
  1. ZOMETA [Suspect]
     Active Substance: ZOLEDRONIC ACID
     Indication: METASTASIS
     Dosage: 4 MG/100 ML, ONCE EVERY 4 WEEKS
     Route: 042

REACTIONS (2)
  - Terminal state [Unknown]
  - Breast cancer [Fatal]
